FAERS Safety Report 17999266 (Version 1)
Quarter: 2020Q3

REPORT INFORMATION
  Report Type: Spontaneous
  Country: US (occurrence: US)
  Receive Date: 20200709
  Receipt Date: 20200709
  Transmission Date: 20201103
  Serious: No
  Sender: FDA-Public Use
  Company Number: US-GLENMARK PHARMACEUTICALS-2020GMK046667

PATIENT

DRUGS (2)
  1. RILUZOLE TABLETS USP, 50 MG [Suspect]
     Active Substance: RILUZOLE
     Indication: AMYOTROPHIC LATERAL SCLEROSIS
     Dosage: 50 MILLIGRAM, BID (BEFORE MEAL)
     Route: 048
     Dates: start: 20200205, end: 2020
  2. RILUZOLE TABLETS USP, 50 MG [Suspect]
     Active Substance: RILUZOLE
     Dosage: 50 MILLIGRAM, BID (BEFORE MEAL) (SECOND REFILL)
     Route: 048
     Dates: start: 2020

REACTIONS (4)
  - Product packaging quantity issue [Unknown]
  - Product packaging issue [Unknown]
  - Chromaturia [Recovered/Resolved]
  - Product commingling [Unknown]

NARRATIVE: CASE EVENT DATE: 2020
